FAERS Safety Report 4706519-8 (Version None)
Quarter: 2005Q3

REPORT INFORMATION
  Report Type: 
  Country: None (occurrence: None)
  Receive Date: 20050705
  Receipt Date: 20050531
  Transmission Date: 20060218
  Serious: Yes (Death, Other)
  Sender: FDA-Public Use
  Company Number: CA-GLAXOSMITHKLINE-A0564898A

PATIENT
  Age: 61 Year
  Sex: Female

DRUGS (7)
  1. PAXIL [Suspect]
     Indication: DRUG USE FOR UNKNOWN INDICATION
     Dosage: 15MG PER DAY
     Route: 048
  2. IMIPRAMINE [Suspect]
     Indication: DRUG USE FOR UNKNOWN INDICATION
     Dosage: 250MG PER DAY
     Route: 048
  3. AVIRAX [Concomitant]
  4. COMBIVENT [Concomitant]
  5. GABAPENTIN [Concomitant]
  6. PREVACID [Concomitant]
  7. SYMBICORT TURBUHALER [Concomitant]

REACTIONS (1)
  - DRUG LEVEL INCREASED [None]
